FAERS Safety Report 10645813 (Version 1)
Quarter: 2014Q4

REPORT INFORMATION
  Report Type: Spontaneous
  Country: GB (occurrence: None)
  Receive Date: 20141209
  Receipt Date: 20141209
  Transmission Date: 20150529
  Serious: Yes (Other)
  Sender: FDA-Public Use
  Company Number: 2014AQMD00138

PATIENT

DRUGS (1)
  1. HYDROCORTISONE (HYDROCORTISONE) UNKNOWN [Suspect]
     Active Substance: HYDROCORTISONE

REACTIONS (7)
  - Hyponatraemia [None]
  - Left ventricular hypertrophy [None]
  - Hyperglycaemia [None]
  - Oesophageal perforation [None]
  - Hypertension [None]
  - Weight gain poor [None]
  - Fracture [None]
